FAERS Safety Report 8505095-1 (Version None)
Quarter: 2012Q3

REPORT INFORMATION
  Report Type: 
  Country: None (occurrence: None)
  Receive Date: 20120712
  Receipt Date: 20120703
  Transmission Date: 20120928
  Serious: Yes (Other)
  Sender: FDA-Public Use
  Company Number: CA-JNJFOC-20120613340

PATIENT
  Sex: Female
  Weight: 63.6 kg

DRUGS (9)
  1. REMICADE [Suspect]
     Dosage: LOADING DOSE, INTERVAL 8 WEEKS
     Route: 042
     Dates: start: 20120611
  2. REMICADE [Suspect]
     Indication: PSORIATIC ARTHROPATHY
     Dosage: INTERVAL 8 WEEKS
     Route: 042
     Dates: start: 20120626, end: 20120626
  3. ACETAMINOPHEN [Concomitant]
     Indication: PREMEDICATION
     Route: 048
  4. REMICADE [Suspect]
     Dosage: INTERVAL 8 WEEKS
     Route: 042
     Dates: start: 20120626, end: 20120626
  5. REMICADE [Suspect]
     Route: 042
     Dates: start: 20091118
  6. REMICADE [Suspect]
     Route: 042
     Dates: start: 20091118
  7. REMICADE [Suspect]
     Indication: PSORIASIS
     Dosage: LOADING DOSE, INTERVAL 8 WEEKS
     Route: 042
     Dates: start: 20120611
  8. NAPROXEN [Concomitant]
     Route: 065
  9. BENADRYL [Concomitant]
     Indication: PREMEDICATION
     Route: 048

REACTIONS (10)
  - FEELING COLD [None]
  - PAIN IN JAW [None]
  - LYMPHADENOPATHY [None]
  - DYSPNOEA [None]
  - PYREXIA [None]
  - SWELLING FACE [None]
  - BACK PAIN [None]
  - INFUSION RELATED REACTION [None]
  - CHILLS [None]
  - TREMOR [None]
